FAERS Safety Report 18845704 (Version 1)
Quarter: 2021Q1

REPORT INFORMATION
  Report Type: Report from Study
  Country: AU (occurrence: AU)
  Receive Date: 20210203
  Receipt Date: 20210203
  Transmission Date: 20210419
  Serious: No
  Sender: FDA-Public Use
  Company Number: AU-EXELIXIS-CABO-20029723

PATIENT
  Age: 22 Year
  Sex: Male

DRUGS (4)
  1. CABOMETYX [Suspect]
     Active Substance: CABOZANTINIB S-MALATE
     Indication: EWING^S SARCOMA METASTATIC
     Dosage: 60 MG, QD
     Route: 048
     Dates: start: 20200613
  2. IBUPROFEN. [Concomitant]
     Active Substance: IBUPROFEN
  3. PARACETAMOL [Concomitant]
     Active Substance: ACETAMINOPHEN
  4. OXYCODONE [Concomitant]
     Active Substance: OXYCODONE

REACTIONS (4)
  - Diarrhoea [Not Recovered/Not Resolved]
  - Off label use [Unknown]
  - Skin hypopigmentation [Not Recovered/Not Resolved]
  - Fatigue [Not Recovered/Not Resolved]

NARRATIVE: CASE EVENT DATE: 202007
